FAERS Safety Report 4744492-7 (Version None)
Quarter: 2005Q3

REPORT INFORMATION
  Report Type: 
  Country: None (occurrence: None)
  Receive Date: 20050811
  Receipt Date: 20050808
  Transmission Date: 20060218
  Serious: Yes (Other)
  Sender: FDA-Public Use
  Company Number: 005390

PATIENT
  Sex: Female

DRUGS (5)
  1. MEDROXYPROGESTERONE ACETATE [Suspect]
     Dosage: ORAL
     Route: 048
  2. CENESTIN [Suspect]
     Dosage: ORAL
     Route: 048
  3. ESTRADIOL [Suspect]
     Dosage: ORAL
     Route: 048
  4. ESTROPIPATE [Suspect]
     Dosage: ORAL
     Route: 048
  5. ESTROGENS ESTERFIELD (ESTROGENS ESTERFIELD) [Suspect]
     Dosage: ORAL
     Route: 048

REACTIONS (1)
  - BREAST CANCER FEMALE [None]
